FAERS Safety Report 20492251 (Version 3)
Quarter: 2022Q2

REPORT INFORMATION
  Report Type: Report from Study
  Country: FR (occurrence: FR)
  Receive Date: 20220218
  Receipt Date: 20220614
  Transmission Date: 20220721
  Serious: Yes (Death, Hospitalization, Other)
  Sender: FDA-Public Use
  Company Number: FR-GILEAD-2022-0570353

PATIENT
  Age: 69 Year
  Sex: Female
  Weight: 103 kg

DRUGS (7)
  1. SACITUZUMAB GOVITECAN [Suspect]
     Active Substance: SACITUZUMAB GOVITECAN
     Indication: Triple negative breast cancer
     Dosage: 10 MG/KG,C1 D1
     Route: 042
     Dates: start: 20220128, end: 20220128
  2. SACITUZUMAB GOVITECAN [Suspect]
     Active Substance: SACITUZUMAB GOVITECAN
     Dosage: 10 MG/KG, C1D8
     Route: 042
     Dates: start: 20220204, end: 20220204
  3. HYDROCHLOROTHIAZIDE\VALSARTAN [Concomitant]
     Active Substance: HYDROCHLOROTHIAZIDE\VALSARTAN
     Indication: Hypertension
  4. RABEPRAZOLE SODIUM [Concomitant]
     Active Substance: RABEPRAZOLE SODIUM
  5. XARELTO [Concomitant]
     Active Substance: RIVAROXABAN
     Indication: Deep vein thrombosis
  6. OFLOXACIN [Concomitant]
     Active Substance: OFLOXACIN
     Indication: Neutropenia
     Dosage: UNK
     Dates: start: 20220209
  7. OFLOXACIN [Concomitant]
     Active Substance: OFLOXACIN
     Indication: Diarrhoea

REACTIONS (8)
  - Febrile bone marrow aplasia [Fatal]
  - Gastrointestinal toxicity [Unknown]
  - Haematotoxicity [Unknown]
  - Inflammation [Unknown]
  - Multiple organ dysfunction syndrome [Unknown]
  - Sepsis [Unknown]
  - Aplasia [Unknown]
  - Febrile neutropenia [Unknown]

NARRATIVE: CASE EVENT DATE: 20220211
